FAERS Safety Report 9750242 (Version 5)
Quarter: 2018Q1

REPORT INFORMATION
  Report Type: Spontaneous
  Country: IT (occurrence: IT)
  Receive Date: 20131212
  Receipt Date: 20180302
  Transmission Date: 20180509
  Serious: Yes (Hospitalization, Other)
  Sender: FDA-Public Use
  Company Number: IT-TEVA-445012ISR

PATIENT
  Age: 91 Year
  Sex: Female

DRUGS (11)
  1. KANRENOL 100 MG [Concomitant]
  2. VENITRIN 10 MG/24 H [Concomitant]
  3. RIOPAN 80 MG/ML [Concomitant]
  4. LEVOPRAID 25 MG [Concomitant]
  5. CARDIOASPIRIN 100 MG [Concomitant]
     Active Substance: ASPIRIN
     Dosage: GASTRO-RESISTANT TABLET
  6. LASIX [Concomitant]
     Active Substance: FUROSEMIDE
  7. CITALOPRAM CLORIDRATO [Suspect]
     Active Substance: CITALOPRAM HYDROCHLORIDE
     Dosage: 6 GTT DAILY;
     Route: 048
     Dates: start: 20130620, end: 20130620
  8. TAVOR 1 MG [Suspect]
     Active Substance: LORAZEPAM
     Indication: INSOMNIA
     Dosage: 1 MILLIGRAM DAILY;
     Route: 048
     Dates: start: 20130101, end: 20130621
  9. ELAN 50 MG [Concomitant]
     Dosage: PROLONGED-RELEASE HARD CAPSULE
  10. CARVEDILOLO [Concomitant]
     Active Substance: CARVEDILOL
  11. LANSOX 30 MG [Concomitant]

REACTIONS (2)
  - Aortic stenosis [Unknown]
  - Sopor [Recovered/Resolved]

NARRATIVE: CASE EVENT DATE: 20130621
